FAERS Safety Report 7766026-5 (Version None)
Quarter: 2011Q3

REPORT INFORMATION
  Report Type: 
  Country: None (occurrence: None)
  Receive Date: 20110921
  Receipt Date: 20110908
  Transmission Date: 20111222
  Serious: Yes (Other)
  Sender: FDA-Public Use
  Company Number: GB-MYLANLABS-2011S1013754

PATIENT
  Sex: Male

DRUGS (7)
  1. CALCIUM CHANNEL BLOCKERS [Concomitant]
     Indication: HYPERTENSION
  2. MYCOPHENOLATE MOFETIL [Suspect]
  3. BETA BLOCKING AGENTS [Concomitant]
     Indication: PRODUCT USED FOR UNKNOWN INDICATION
  4. PREDNISOLONE [Suspect]
     Route: 048
  5. MYCOPHENOLATE MOFETIL [Suspect]
     Indication: IMMUNOSUPPRESSION
  6. TACROLIMUS [Suspect]
     Indication: IMMUNOSUPPRESSION
  7. PREDNISOLONE [Suspect]
     Indication: IMMUNOSUPPRESSION
     Route: 048

REACTIONS (4)
  - DRUG INEFFECTIVE [None]
  - SKIN PAPILLOMA [None]
  - TUBULOINTERSTITIAL NEPHRITIS AND UVEITIS SYNDROME [None]
  - CUSHINGOID [None]
